FAERS Safety Report 8451526-5 (Version None)
Quarter: 2012Q2

REPORT INFORMATION
  Report Type: 
  Country: None (occurrence: None)
  Receive Date: 20120620
  Receipt Date: 20120306
  Transmission Date: 20120825
  Serious: No
  Sender: FDA-Public Use
  Company Number: US-VERTEX PHARMACEUTICALS INC.-AE-2012-003233

PATIENT
  Sex: Male
  Weight: 116.22 kg

DRUGS (7)
  1. RIBAVIRIN [Concomitant]
     Indication: HEPATITIS C
     Route: 048
     Dates: start: 20120129, end: 20120301
  2. RIBAVIRIN [Concomitant]
     Route: 048
     Dates: start: 20120301
  3. PEGASYS [Concomitant]
     Indication: HEPATITIS C
     Route: 058
     Dates: start: 20120129
  4. XANAX [Concomitant]
     Indication: ANXIETY
     Route: 048
  5. ZOLOFT [Concomitant]
     Indication: DEPRESSION
     Route: 048
  6. INCIVEK [Suspect]
     Indication: HEPATITIS C
     Route: 048
     Dates: start: 20120129
  7. VICODIN [Concomitant]
     Indication: PAIN

REACTIONS (3)
  - NAUSEA [None]
  - MEDICATION ERROR [None]
  - FATIGUE [None]
